FAERS Safety Report 9402322 (Version 1)
Quarter: 2013Q3

REPORT INFORMATION
  Report Type: Spontaneous
  Country: US (occurrence: None)
  Receive Date: 20130712
  Receipt Date: 20130712
  Transmission Date: 20140515
  Serious: Yes (Other)
  Sender: FDA-Public Use
  Company Number: None

PATIENT
  Sex: Male

DRUGS (2)
  1. RIBAVIRIN CAPSULES [Suspect]
     Indication: HEPATITIS C
     Route: 048
     Dates: start: 20130506, end: 20130607
  2. INCIVEK 375MG VERTEX PHARMA [Suspect]
     Route: 048

REACTIONS (5)
  - Fatigue [None]
  - Vomiting [None]
  - Nausea [None]
  - Influenza like illness [None]
  - Pruritus [None]
